FAERS Safety Report 7825099-1 (Version None)
Quarter: 2011Q4

REPORT INFORMATION
  Report Type: 
  Country: None (occurrence: None)
  Receive Date: 20111019
  Receipt Date: 20101207
  Transmission Date: 20120403
  Serious: No
  Sender: FDA-Public Use
  Company Number: US-BRISTOL-MYERS SQUIBB COMPANY-15303175

PATIENT
  Age: 68 Year
  Sex: Female
  Weight: 59 kg

DRUGS (7)
  1. CALCIUM CARBONATE [Concomitant]
  2. VITAMIN B-12 [Concomitant]
  3. RESTASIS [Concomitant]
  4. LOVAZA [Concomitant]
  5. POTASSIUM [Concomitant]
  6. ALFALFA [Concomitant]
  7. AVALIDE [Suspect]
     Dosage: TAKEN FOR 2 MORNINGS.AVALIDE TABLETS 150MG/12.5MG 1DF=12.5MG

REACTIONS (3)
  - BACK PAIN [None]
  - MUSCULOSKELETAL PAIN [None]
  - MUSCULOSKELETAL STIFFNESS [None]
